FAERS Safety Report 8116889-9 (Version None)
Quarter: 2012Q1

REPORT INFORMATION
  Report Type: 
  Country: None (occurrence: None)
  Receive Date: 20120206
  Receipt Date: 20120202
  Transmission Date: 20120608
  Serious: Yes (Death, Other)
  Sender: FDA-Public Use
  Company Number: PHHY2012BE008812

PATIENT
  Age: 51 Year
  Sex: Male

DRUGS (5)
  1. TIGECYCLINE [Concomitant]
     Dosage: 100 MG, UNK
  2. MEROPENEM [Suspect]
     Dosage: 1 G, Q8H
  3. COLISTIN SULFATE [Interacting]
     Dosage: 3 MILLION UNITS
  4. VANCOMYCIN [Concomitant]
  5. TIGECYCLINE [Concomitant]
     Dosage: 50 MG, Q12H

REACTIONS (12)
  - METABOLIC DISORDER [None]
  - DRUG LEVEL INCREASED [None]
  - CONVULSION [None]
  - CARDIOVASCULAR INSUFFICIENCY [None]
  - SHOCK [None]
  - FUNGAL SEPSIS [None]
  - SEPSIS [None]
  - PNEUMONIA [None]
  - POSTOPERATIVE WOUND INFECTION [None]
  - DRUG INTERACTION [None]
  - ELECTROLYTE IMBALANCE [None]
  - APNOEA [None]
